FAERS Safety Report 17452344 (Version 2)
Quarter: 2020Q1

REPORT INFORMATION
  Report Type: Spontaneous
  Country: US (occurrence: US)
  Receive Date: 20200224
  Receipt Date: 20200317
  Transmission Date: 20200409
  Serious: No
  Sender: FDA-Public Use
  Company Number: US-ASTRAZENECA-2020SE26083

PATIENT

DRUGS (1)
  1. BYDUREON [Suspect]
     Active Substance: EXENATIDE
     Route: 065
     Dates: start: 20200113

REACTIONS (4)
  - Wrong technique in device usage process [Unknown]
  - Pain in extremity [Unknown]
  - Device issue [Unknown]
  - Device difficult to use [Unknown]
